FAERS Safety Report 6048194-9 (Version None)
Quarter: 2009Q1

REPORT INFORMATION
  Report Type: 
  Country: None (occurrence: None)
  Receive Date: 20090123
  Receipt Date: 20090113
  Transmission Date: 20090719
  Serious: Yes (Other)
  Sender: FDA-Public Use
  Company Number: US-JNJFOC-20081102675

PATIENT
  Sex: Male

DRUGS (2)
  1. REMICADE [Suspect]
     Indication: OSTEITIS
     Route: 042
  2. REMICADE [Suspect]
     Indication: OSTEOMYELITIS
     Route: 042

REACTIONS (3)
  - DERMATITIS ATOPIC [None]
  - DYSHIDROSIS [None]
  - PUSTULAR PSORIASIS [None]
